FAERS Safety Report 6259660-5 (Version None)
Quarter: 2009Q3

REPORT INFORMATION
  Report Type: 
  Country: None (occurrence: None)
  Receive Date: 20090701
  Receipt Date: 20090616
  Transmission Date: 20100115
  Serious: Yes (Death)
  Sender: FDA-Public Use
  Company Number: 2009228010

PATIENT
  Age: 78 Year
  Sex: Female

DRUGS (3)
  1. FRAGMIN [Suspect]
     Dosage: 5000 IU, 1X/DAY, SUBCUTANEOUS
     Route: 058
  2. RANITIDINE [Concomitant]
  3. BUSCAPINA (HYOSCINE BUTYLBROMIDE) [Concomitant]

REACTIONS (8)
  - ACIDOSIS [None]
  - ACUTE CORONARY SYNDROME [None]
  - BLOOD CREATININE INCREASED [None]
  - HAEMOGLOBIN DECREASED [None]
  - HYPOVOLAEMIC SHOCK [None]
  - INTERNATIONAL NORMALISED RATIO INCREASED [None]
  - PERITONEAL HAEMORRHAGE [None]
  - RESPIRATORY FAILURE [None]
